FAERS Safety Report 21484097 (Version 1)
Quarter: 2022Q4

REPORT INFORMATION
  Report Type: Spontaneous
  Country: US (occurrence: US)
  Receive Date: 20221020
  Receipt Date: 20221020
  Transmission Date: 20230113
  Serious: No
  Sender: FDA-Public Use
  Company Number: US-BRISTOL-MYERS SQUIBB COMPANY-2022-124148

PATIENT
  Age: 66 Year
  Sex: Male
  Weight: 89.36 kg

DRUGS (1)
  1. REVLIMID [Suspect]
     Active Substance: LENALIDOMIDE
     Indication: Plasma cell myeloma
     Dosage: FREQ: 14D OF 21D CYCLE
     Route: 048
     Dates: start: 20221005

REACTIONS (1)
  - Muscle spasms [Unknown]
